FAERS Safety Report 9653176 (Version 2)
Quarter: 2014Q2

REPORT INFORMATION
  Report Type: Spontaneous
  Country: US (occurrence: US)
  Receive Date: 20131029
  Receipt Date: 20140630
  Transmission Date: 20141212
  Serious: Yes (Other)
  Sender: FDA-Public Use
  Company Number: US-GLAXOSMITHKLINE-A1046712A

PATIENT
  Age: 71 Year
  Sex: Male

DRUGS (8)
  1. ADVAIR [Suspect]
     Indication: CHRONIC OBSTRUCTIVE PULMONARY DISEASE
     Dosage: 1PUFF TWICE PER DAY
     Route: 055
     Dates: start: 20090112
  2. SPIRIVA [Concomitant]
  3. ALBUTEROL NEBULIZER [Concomitant]
  4. ASPIRIN [Concomitant]
  5. CRESTOR [Concomitant]
  6. LISINOPRIL [Concomitant]
  7. LOVAZA [Concomitant]
     Dates: start: 20120616
  8. NEXIUM [Concomitant]

REACTIONS (5)
  - Respiratory therapy [Recovered/Resolved]
  - Dyspnoea [Recovered/Resolved]
  - Off label use [Unknown]
  - Drug prescribing error [Unknown]
  - Incorrect dose administered [Unknown]
